FAERS Safety Report 14390072 (Version 2)
Quarter: 2018Q1

REPORT INFORMATION
  Report Type: Spontaneous
  Country: US (occurrence: US)
  Receive Date: 20180115
  Receipt Date: 20180302
  Transmission Date: 20180509
  Serious: No
  Sender: FDA-Public Use
  Company Number: US-MYLANLABS-2017M1080089

PATIENT
  Age: 65 Year
  Sex: Male
  Weight: 70.29 kg

DRUGS (1)
  1. MUSE [Suspect]
     Active Substance: ALPROSTADIL
     Indication: ERECTILE DYSFUNCTION
     Dosage: UNK, PRN
     Route: 066
     Dates: start: 2015

REACTIONS (2)
  - Drug ineffective [Unknown]
  - Drug administration error [Recovered/Resolved]

NARRATIVE: CASE EVENT DATE: 20171213
